FAERS Safety Report 7101519-5 (Version None)
Quarter: 2010Q4

REPORT INFORMATION
  Report Type: 
  Country: None (occurrence: None)
  Receive Date: 20101115
  Receipt Date: 20101105
  Transmission Date: 20110411
  Serious: Yes (Other)
  Sender: FDA-Public Use
  Company Number: PHHO2010TR16778

PATIENT
  Sex: Female
  Weight: 72 kg

DRUGS (1)
  1. FTY 720 FTY+CAP+MSC [Suspect]
     Indication: MULTIPLE SCLEROSIS
     Dosage: DOSE BLINDED
     Route: 048
     Dates: start: 20080829, end: 20100903

REACTIONS (4)
  - ANOGENITAL WARTS [None]
  - PAPILLOMA VIRAL INFECTION [None]
  - PRURITUS GENITAL [None]
  - RASH [None]
